FAERS Safety Report 4863353-6 (Version None)
Quarter: 2005Q4

REPORT INFORMATION
  Report Type: 
  Country: None (occurrence: None)
  Receive Date: 20051222
  Receipt Date: 20051213
  Transmission Date: 20060501
  Serious: Yes (Hospitalization, Other)
  Sender: FDA-Public Use
  Company Number: US-JNJFOC-20051102055

PATIENT
  Sex: Male
  Weight: 109.32 kg

DRUGS (6)
  1. REMICADE [Suspect]
     Route: 042
  2. REMICADE [Suspect]
     Indication: ANKYLOSING SPONDYLITIS
     Route: 042
  3. METHOTREXATE [Concomitant]
     Indication: IRITIS
  4. PREDNISONE TAB [Concomitant]
  5. PREDNISONE TAB [Concomitant]
     Indication: IRITIS
  6. BEXTRA [Concomitant]

REACTIONS (9)
  - ARTERY DISSECTION [None]
  - BLINDNESS [None]
  - CEREBRAL INFARCTION [None]
  - HEADACHE [None]
  - ILL-DEFINED DISORDER [None]
  - INFUSION RELATED REACTION [None]
  - IRITIS [None]
  - SPEECH DISORDER [None]
  - VOMITING [None]
